FAERS Safety Report 13627529 (Version 1)
Quarter: 2017Q2

REPORT INFORMATION
  Report Type: Spontaneous
  Country: JP (occurrence: JP)
  Receive Date: 20170608
  Receipt Date: 20170608
  Transmission Date: 20170830
  Serious: Yes (Death)
  Sender: FDA-Public Use
  Company Number: JP-JT-EVA201701388KERYXP-001

PATIENT
  Age: 87 Year
  Sex: Male

DRUGS (1)
  1. RIONA [Suspect]
     Active Substance: FERRIC CITRATE ANHYDROUS
     Indication: HYPERPHOSPHATAEMIA
     Dosage: 250 MG, TID
     Route: 048
     Dates: end: 201705

REACTIONS (3)
  - Discoloured vomit [Not Recovered/Not Resolved]
  - Death [Fatal]
  - Sepsis [Fatal]

NARRATIVE: CASE EVENT DATE: 201705
